FAERS Safety Report 10846455 (Version 1)
Quarter: 2015Q1

REPORT INFORMATION
  Report Type: Report from Study
  Country: US (occurrence: US)
  Receive Date: 20150220
  Receipt Date: 20150220
  Transmission Date: 20150721
  Serious: Yes (Hospitalization, Other)
  Sender: FDA-Public Use
  Company Number: PHEH2015US001587

PATIENT
  Age: 68 Year
  Sex: Female

DRUGS (2)
  1. AFINITOR [Suspect]
     Active Substance: EVEROLIMUS
     Indication: RENAL NEOPLASM
     Dosage: 10 MG, QD
     Route: 048
     Dates: start: 2012
  2. AFINITOR [Suspect]
     Active Substance: EVEROLIMUS
     Indication: LUNG NEOPLASM
     Dosage: 5 MG, QD
     Route: 048
     Dates: start: 2012

REACTIONS (5)
  - Immunodeficiency [Unknown]
  - Lung disorder [Unknown]
  - Lower limb fracture [Unknown]
  - Fall [Unknown]
  - Malaise [Unknown]

NARRATIVE: CASE EVENT DATE: 20150214
